FAERS Safety Report 4868794-9 (Version None)
Quarter: 2005Q4

REPORT INFORMATION
  Report Type: 
  Country: None (occurrence: None)
  Receive Date: 20051229
  Receipt Date: 20051223
  Transmission Date: 20060501
  Serious: Yes (Other)
  Sender: FDA-Public Use
  Company Number: GB-ABBOTT-05P-167-0320684-00

PATIENT
  Age: 43 Year
  Sex: Female

DRUGS (2)
  1. EPILIM CHRONO TABLETS [Suspect]
     Indication: EPILEPSY
     Route: 048
     Dates: start: 19890101
  2. RISEDRONATE SODIUM [Interacting]
     Indication: OSTEOPOROSIS
     Route: 048
     Dates: start: 20051021, end: 20051123

REACTIONS (4)
  - DRUG INTERACTION [None]
  - DYSPHASIA [None]
  - FACIAL PALSY [None]
  - HEADACHE [None]
